FAERS Safety Report 6184101-6 (Version None)
Quarter: 2009Q2

REPORT INFORMATION
  Report Type: 
  Country: None (occurrence: None)
  Receive Date: 20090508
  Receipt Date: 20090429
  Transmission Date: 20091009
  Serious: Yes (Other)
  Sender: FDA-Public Use
  Company Number: PHHY2009ES16729

PATIENT
  Age: 33 Year
  Sex: Female

DRUGS (2)
  1. VOLTAREN [Suspect]
     Indication: CONTUSION
     Dosage: 1 TABLET (50 MG) ALTERNATIVELY
     Route: 048
  2. OMEPRAZOLE [Concomitant]

REACTIONS (7)
  - BLOOD IRON INCREASED [None]
  - DYSPEPSIA [None]
  - FLATULENCE [None]
  - JAUNDICE [None]
  - PRURITUS [None]
  - RASH [None]
  - TRANSAMINASES [None]
